FAERS Safety Report 10558476 (Version 1)
Quarter: 2014Q4

REPORT INFORMATION
  Report Type: Spontaneous
  Country: IT (occurrence: IT)
  Receive Date: 20141031
  Receipt Date: 20141031
  Transmission Date: 20150529
  Serious: Yes (Other)
  Sender: FDA-Public Use
  Company Number: IT-WATSON-2014-23152

PATIENT
  Age: 15 Year
  Sex: Male

DRUGS (1)
  1. RISPERIDONE (UNKNOWN) [Suspect]
     Active Substance: RISPERIDONE
     Indication: PSYCHOTIC DISORDER
     Dosage: 1 MG
     Route: 048
     Dates: start: 20130530, end: 20140407

REACTIONS (4)
  - Hallucination [Recovering/Resolving]
  - Thinking abnormal [Recovering/Resolving]
  - Abnormal behaviour [Recovering/Resolving]
  - No therapeutic response [Recovering/Resolving]

NARRATIVE: CASE EVENT DATE: 20140407
